FAERS Safety Report 5764464-3 (Version None)
Quarter: 2008Q2

REPORT INFORMATION
  Report Type: 
  Country: None (occurrence: None)
  Receive Date: 20080610
  Receipt Date: 20080529
  Transmission Date: 20081010
  Serious: Yes (Hospitalization)
  Sender: FDA-Public Use
  Company Number: US-PFIZER INC-2008046133

PATIENT
  Sex: Female
  Weight: 123.8 kg

DRUGS (2)
  1. GEODON [Suspect]
     Indication: SCHIZOPHRENIA, PARANOID TYPE
     Route: 048
  2. ZOLOFT [Suspect]

REACTIONS (10)
  - ANXIETY [None]
  - BODY DYSMORPHIC DISORDER [None]
  - DYSPHONIA [None]
  - FEAR [None]
  - HALLUCINATION, AUDITORY [None]
  - HOMICIDAL IDEATION [None]
  - INSOMNIA [None]
  - INTENTIONAL DRUG MISUSE [None]
  - TREMOR [None]
  - VIOLENCE-RELATED SYMPTOM [None]
